FAERS Safety Report 8865661 (Version 1)
Quarter: 2012Q4

REPORT INFORMATION
  Report Type: 
  Country: US (occurrence: US)
  Receive Date: 20121024
  Receipt Date: 20121024
  Transmission Date: 20130627
  Serious: No
  Sender: FDA-Public Use
  Company Number: US-AMGEN-USASP2012004319

PATIENT
  Age: 51 Year
  Sex: Female

DRUGS (5)
  1. ENBREL [Suspect]
     Indication: PRODUCT USED FOR UNKNOWN INDICATION
     Dosage: 50 mg, qwk
     Route: 058
  2. CELEXA                             /00582602/ [Concomitant]
     Dosage: 10 mg, UNK
  3. SYNTHROID [Concomitant]
     Dosage: 100 UNK, UNK
  4. IBUPROFEN [Concomitant]
     Dosage: 200 mg, UNK
  5. ESTRACE [Concomitant]
     Dosage: 0.5 mg, UNK

REACTIONS (1)
  - Upper respiratory tract infection [Unknown]
